FAERS Safety Report 26130356 (Version 1)
Quarter: 2025Q4

REPORT INFORMATION
  Report Type: Spontaneous
  Country: JP (occurrence: JP)
  Receive Date: 20251208
  Receipt Date: 20251208
  Transmission Date: 20260117
  Serious: Yes (Hospitalization, Other)
  Sender: CHEPLAPHARM
  Company Number: JP-CP_KK-2025JP005486

PATIENT
  Age: 60 Year
  Sex: Male

DRUGS (2)
  1. CAPECITABINE [Suspect]
     Active Substance: CAPECITABINE
     Indication: Colon cancer
     Dosage: CAPOX THERAPY, 8 COURSES
  2. OXALIPLATIN [Suspect]
     Active Substance: OXALIPLATIN
     Indication: Colon cancer
     Dosage: CAPOX THERAPY, 8 COURSES

REACTIONS (5)
  - Gastrointestinal perforation [Recovering/Resolving]
  - Colitis ischaemic [Recovering/Resolving]
  - Cerebral infarction [Recovering/Resolving]
  - Cardiac failure [Recovering/Resolving]
  - Peritonitis [Recovering/Resolving]
